FAERS Safety Report 8365405-5 (Version None)
Quarter: 2012Q2

REPORT INFORMATION
  Report Type: 
  Country: None (occurrence: None)
  Receive Date: 20120516
  Receipt Date: 20120510
  Transmission Date: 20120825
  Serious: Yes (Hospitalization)
  Sender: FDA-Public Use
  Company Number: JP-B.I. PHARMACEUTICALS,INC./RIDGEFIELD-2012-EU-02121GD

PATIENT
  Age: 86 Year
  Sex: Female
  Weight: 46.1 kg

DRUGS (4)
  1. DABIGATRAN [Suspect]
     Indication: ATRIAL FIBRILLATION
     Dosage: 220 MG
     Route: 048
     Dates: start: 20110705
  2. AMLODIPINE [Concomitant]
     Indication: HYPERTENSION
     Dosage: 5 MG
     Route: 048
     Dates: start: 20110705
  3. TENORMIN [Concomitant]
     Indication: HYPERTENSION
     Dosage: 12.5 MG
     Route: 065
     Dates: start: 20110705
  4. CANDESARTAN CILEXETIL AND HYDROCHLOROTHIAZIDE [Concomitant]
     Indication: HYPERTENSION
     Route: 065
     Dates: start: 20110705

REACTIONS (4)
  - ANAEMIA [None]
  - GASTROINTESTINAL TELANGIECTASIA [None]
  - RECTAL HAEMORRHAGE [None]
  - HAEMATOCHEZIA [None]
